FAERS Safety Report 7413345-8 (Version None)
Quarter: 2011Q2

REPORT INFORMATION
  Report Type: 
  Country: None (occurrence: None)
  Receive Date: 20110413
  Receipt Date: 20100716
  Transmission Date: 20111010
  Serious: No
  Sender: FDA-Public Use
  Company Number: US-ASTRAZENECA-2010SE29860

PATIENT
  Sex: Male

DRUGS (2)
  1. TOPROL-XL [Suspect]
     Route: 048
     Dates: start: 20070501, end: 20080101
  2. ATENOLOL [Suspect]
     Route: 065
     Dates: start: 20080101

REACTIONS (6)
  - DIZZINESS [None]
  - DYSSTASIA [None]
  - ABDOMINAL DISCOMFORT [None]
  - MALAISE [None]
  - APPARENT DEATH [None]
  - WEIGHT DECREASED [None]
